FAERS Safety Report 18543285 (Version 2)
Quarter: 2020Q4

REPORT INFORMATION
  Report Type: Other
  Country: CA (occurrence: CA)
  Receive Date: 20201125
  Receipt Date: 20201214
  Transmission Date: 20210114
  Serious: Yes (Other)
  Sender: FDA-Public Use
  Company Number: CA-INTERCEPT-PM2020002355

PATIENT
  Age: 54 Year
  Sex: Female

DRUGS (2)
  1. OCALIVA [Suspect]
     Active Substance: OBETICHOLIC ACID
     Dosage: 5 MILLIGRAM, QD
     Route: 048
     Dates: start: 20200601, end: 20201112
  2. URSODIOL. [Concomitant]
     Active Substance: URSODIOL
     Dosage: 1000 MILLIGRAM, QD

REACTIONS (2)
  - Renal impairment [Recovering/Resolving]
  - Therapy interrupted [Not Recovered/Not Resolved]

NARRATIVE: CASE EVENT DATE: 2020
